FAERS Safety Report 5193713-8 (Version None)
Quarter: 2006Q4

REPORT INFORMATION
  Report Type: 
  Country: None (occurrence: None)
  Receive Date: 20061222
  Receipt Date: 20061209
  Transmission Date: 20070319
  Serious: Yes (Other)
  Sender: FDA-Public Use
  Company Number: 2006152909

PATIENT
  Sex: Female

DRUGS (1)
  1. ARTHROTEC [Suspect]

REACTIONS (2)
  - HAEMORRHAGE [None]
  - OEDEMA PERIPHERAL [None]
